FAERS Safety Report 9099637 (Version 1)
Quarter: 2013Q1

REPORT INFORMATION
  Report Type: Spontaneous
  Country: US (occurrence: US)
  Receive Date: 20130214
  Receipt Date: 20130214
  Transmission Date: 20140127
  Serious: Yes (Other)
  Sender: FDA-Public Use
  Company Number: US-PFIZER INC-2013058137

PATIENT
  Sex: Male

DRUGS (4)
  1. TIKOSYN [Suspect]
     Dosage: UNK
  2. DILTIAZEM [Concomitant]
  3. METFORMIN [Concomitant]
  4. RAMIPRIL [Concomitant]

REACTIONS (1)
  - Atrial fibrillation [Unknown]
